FAERS Safety Report 16415486 (Version 1)
Quarter: 2019Q3

REPORT INFORMATION
  Report Type: Spontaneous
  Country: US (occurrence: US)
  Receive Date: 20190610
  Receipt Date: 20190610
  Transmission Date: 20191004
  Serious: No
  Sender: FDA-Public Use
  Company Number: None

PATIENT
  Age: 43 Year
  Sex: Female
  Weight: 72 kg

DRUGS (1)
  1. KADCYLA [Suspect]
     Active Substance: ADO-TRASTUZUMAB EMTANSINE
     Indication: BREAST CANCER RECURRENT
     Dosage: ?          OTHER FREQUENCY:1 TIME EVERY 3 WKS;OTHER ROUTE:CENTRAL LINE PORT?

REACTIONS (4)
  - Rash [None]
  - Platelet count decreased [None]
  - Fatigue [None]
  - Epistaxis [None]

NARRATIVE: CASE EVENT DATE: 20190607
